FAERS Safety Report 8472674-X (Version None)
Quarter: 2012Q2

REPORT INFORMATION
  Report Type: 
  Country: None (occurrence: None)
  Receive Date: 20120627
  Receipt Date: 20120611
  Transmission Date: 20120825
  Serious: No
  Sender: FDA-Public Use
  Company Number: US-ASTRAZENECA-2012SE38821

PATIENT
  Sex: Male
  Weight: 68 kg

DRUGS (7)
  1. DOXAZOSIN MESYLATE [Concomitant]
     Indication: PROSTATIC DISORDER
  2. RANITADINE [Concomitant]
     Indication: HYPERCHLORHYDRIA
  3. SUCRALFATE [Concomitant]
     Indication: HYPERCHLORHYDRIA
  4. NEXIUM [Suspect]
     Indication: BARRETT'S OESOPHAGUS
     Route: 048
  5. CALCIUM CHEWS [Concomitant]
     Indication: BONE DISORDER
  6. DOXAZOSIN MESYLATE [Concomitant]
     Indication: BLOOD PRESSURE ABNORMAL
  7. NEXIUM [Suspect]
     Indication: GASTROOESOPHAGEAL REFLUX DISEASE
     Route: 048

REACTIONS (1)
  - BONE LOSS [None]
